FAERS Safety Report 9066877 (Version 1)
Quarter: 2013Q1

REPORT INFORMATION
  Report Type: Spontaneous
  Country: FR (occurrence: FR)
  Receive Date: 20130214
  Receipt Date: 20130214
  Transmission Date: 20140127
  Serious: Yes (Hospitalization)
  Sender: FDA-Public Use
  Company Number: FR-PFIZER INC-2013052101

PATIENT
  Age: 68 Year
  Sex: Female

DRUGS (3)
  1. AROMASINE [Suspect]
     Indication: BREAST CANCER
     Dosage: 1 DF, 1X/DAY
     Route: 048
     Dates: start: 20121112, end: 20121226
  2. AFINITOR [Suspect]
     Indication: BREAST CANCER
     Dosage: 1 DF, 1X/DAY
     Route: 048
     Dates: start: 20121112, end: 20121226
  3. MYOCET [Suspect]
     Indication: BREAST CANCER
     Dosage: UNK
     Route: 042
     Dates: start: 20120704, end: 20121017

REACTIONS (1)
  - Cardiac failure [Not Recovered/Not Resolved]
